FAERS Safety Report 4796618-7 (Version None)
Quarter: 2005Q4

REPORT INFORMATION
  Report Type: 
  Country: None (occurrence: None)
  Receive Date: 20051007
  Receipt Date: 20050922
  Transmission Date: 20060501
  Serious: Yes (Other)
  Sender: FDA-Public Use
  Company Number: 2005-0008721

PATIENT
  Age: 56 Year
  Sex: Female

DRUGS (5)
  1. VIREAD [Suspect]
     Indication: ACQUIRED IMMUNODEFICIENCY SYNDROME
     Dosage: 300 MG, 1 IN 1 D
     Dates: start: 20030201, end: 20040101
  2. ABACAVIR (ABACAVIR) [Concomitant]
  3. LOPINAVIR W/RITONAVIR (KALETRA) [Concomitant]
  4. CO-TRIMOXAZOLE (CO-TRIMOXAZOLE) [Concomitant]
  5. ATENOLOL [Concomitant]

REACTIONS (14)
  - ARTHRALGIA [None]
  - BACK PAIN [None]
  - BLOOD ALKALINE PHOSPHATASE INCREASED [None]
  - BLOOD BICARBONATE DECREASED [None]
  - BONE PAIN [None]
  - DRUG INTERACTION [None]
  - HYPOPHOSPHATAEMIA [None]
  - JOINT SWELLING [None]
  - MYOPATHY [None]
  - OLIGURIA [None]
  - OSTEOMALACIA [None]
  - PROTEINURIA [None]
  - REFUSAL OF TREATMENT BY PATIENT [None]
  - RENAL IMPAIRMENT [None]
